FAERS Safety Report 15538743 (Version 3)
Quarter: 2019Q2

REPORT INFORMATION
  Report Type: Spontaneous
  Country: US (occurrence: US)
  Receive Date: 20181022
  Receipt Date: 20190506
  Transmission Date: 20190711
  Serious: No
  Sender: FDA-Public Use
  Company Number: US-SA-2018SA291249

PATIENT
  Age: 71 Year
  Sex: Female

DRUGS (1)
  1. KEVZARA [Suspect]
     Active Substance: SARILUMAB
     Indication: RHEUMATOID ARTHRITIS
     Dosage: 200 MG, QOW
     Route: 058
     Dates: start: 201808

REACTIONS (3)
  - Nasal congestion [Unknown]
  - Nerve compression [Unknown]
  - Joint injury [Unknown]

NARRATIVE: CASE EVENT DATE: 2018
